FAERS Safety Report 13533772 (Version 1)
Quarter: 2017Q2

REPORT INFORMATION
  Report Type: Spontaneous
  Country: US (occurrence: US)
  Receive Date: 20170510
  Receipt Date: 20170510
  Transmission Date: 20170830
  Serious: No
  Sender: FDA-Public Use
  Company Number: US-SA-2017SA050143

PATIENT
  Age: 71 Year
  Sex: Female
  Weight: 67.58 kg

DRUGS (1)
  1. XYZAL ALLERGY 24HR [Suspect]
     Active Substance: LEVOCETIRIZINE DIHYDROCHLORIDE
     Indication: MULTIPLE ALLERGIES
     Route: 065
     Dates: start: 20170321, end: 20170323

REACTIONS (6)
  - Hypoaesthesia [Recovered/Resolved]
  - Eye pruritus [Unknown]
  - Throat irritation [Unknown]
  - Nervousness [Recovered/Resolved]
  - Muscle spasms [Unknown]
  - Sneezing [Unknown]
